FAERS Safety Report 12236229 (Version 2)
Quarter: 2019Q1

REPORT INFORMATION
  Report Type: Spontaneous
  Country: US (occurrence: US)
  Receive Date: 20160404
  Receipt Date: 20190103
  Transmission Date: 20190417
  Serious: Yes (Hospitalization)
  Sender: FDA-Public Use
  Company Number: US-ACTELION-A-NJ2016-133627

PATIENT
  Age: 3 Year
  Sex: Male
  Weight: 6.35 kg

DRUGS (10)
  1. TRACLEER [Suspect]
     Active Substance: BOSENTAN
     Indication: PULMONARY ARTERIAL HYPERTENSION
     Dosage: 15.6 MG, BID
     Route: 048
     Dates: start: 20160114
  2. MELATONIN [Concomitant]
     Active Substance: MELATONIN
     Dosage: 9 MG, QPM
  3. PRILOSEC [Concomitant]
     Active Substance: OMEPRAZOLE MAGNESIUM
     Dosage: 5 ML, BID
  4. FLOVENT HFA [Concomitant]
     Active Substance: FLUTICASONE PROPIONATE
     Dosage: 2 PUFF, BID
  5. GLYCOLAX [Concomitant]
     Active Substance: POLYETHYLENE GLYCOL 3350
     Dosage: .5 CAP, QD
  6. VASOTEC [Concomitant]
     Active Substance: ENALAPRIL MALEATE
     Dosage: 2 ML, UNK
  7. PROAIR HFA [Concomitant]
     Active Substance: ALBUTEROL SULFATE
     Dosage: 2 PUFF, QID
  8. ZYRTEC [Concomitant]
     Active Substance: CETIRIZINE HYDROCHLORIDE
     Dosage: 5 ML, UNK
  9. FLONASE [Concomitant]
     Active Substance: FLUTICASONE PROPIONATE
     Dosage: 1 SPRAY, BID
  10. ATROVENT HFA [Concomitant]
     Active Substance: IPRATROPIUM BROMIDE
     Dosage: 2 PUFF, TID

REACTIONS (11)
  - Cough [Recovered/Resolved]
  - Neutropenia [Recovered/Resolved]
  - Pneumonia [Recovered/Resolved]
  - H1N1 influenza [Recovered/Resolved]
  - Hydrocele [Recovered/Resolved]
  - Scrotal swelling [Recovered/Resolved]
  - Bone marrow failure [Recovered/Resolved]
  - Pyrexia [Recovered/Resolved]
  - Dysuria [Recovered/Resolved]
  - Respiratory distress [Recovered/Resolved]
  - Vomiting [Recovered/Resolved]
